FAERS Safety Report 4662903-2 (Version None)
Quarter: 2005Q2

REPORT INFORMATION
  Report Type: 
  Country: None (occurrence: None)
  Receive Date: 20050511
  Receipt Date: 20050413
  Transmission Date: 20051028
  Serious: Yes (Other)
  Sender: FDA-Public Use
  Company Number: 401861

PATIENT
  Age: 43 Year
  Sex: Female
  Weight: 70.8 kg

DRUGS (2)
  1. PEGASYS [Suspect]
     Indication: HEPATITIS C VIRUS
     Dosage: 1 PER WEEK, SUBCUTANEOUS
     Route: 058
     Dates: start: 20040723, end: 20050304
  2. RIBAVIRIN [Suspect]
     Indication: HEPATITIS C VIRUS
     Dosage: 2 PER DAY ORAL
     Route: 048
     Dates: start: 20040723, end: 20050304

REACTIONS (2)
  - ABDOMINAL PAIN UPPER [None]
  - PANCREATITIS [None]
